FAERS Safety Report 8896866 (Version 1)
Quarter: 2012Q4

REPORT INFORMATION
  Report Type: 
  Country: US (occurrence: US)
  Receive Date: 20121108
  Receipt Date: 20121108
  Transmission Date: 20130627
  Serious: No
  Sender: FDA-Public Use
  Company Number: US-AMGEN-USASP2012025355

PATIENT
  Age: 56 Year
  Sex: Female
  Weight: 65.76 kg

DRUGS (6)
  1. ENBREL [Suspect]
     Indication: PRODUCT USED FOR UNKNOWN INDICATION
     Dosage: 50 mg, qwk
     Route: 058
  2. NAPROSYN /00256201/ [Concomitant]
     Dosage: 250 mg, UNK
  3. PROCHLORPERAZINE [Concomitant]
     Dosage: 5 mg, UNK
  4. VICODIN [Concomitant]
     Dosage: UNK
  5. HYDROCORTISONE [Concomitant]
     Dosage: 1 %, UNK
  6. PLAQUENIL                          /00072602/ [Concomitant]
     Dosage: 200 mg, UNK

REACTIONS (1)
  - Therapeutic response decreased [Unknown]
